FAERS Safety Report 5228738-7 (Version None)
Quarter: 2007Q1

REPORT INFORMATION
  Report Type: 
  Country: None (occurrence: None)
  Receive Date: 20070131
  Receipt Date: 20070119
  Transmission Date: 20070707
  Serious: Yes (Death, Hospitalization)
  Sender: FDA-Public Use
  Company Number: AZAUS200700014

PATIENT
  Age: 55 Year
  Sex: Female
  Weight: 80.5 kg

DRUGS (8)
  1. VIDAZA [Suspect]
     Indication: ACUTE MYELOID LEUKAEMIA
     Dosage: 132.75 MG (75 MG/M2,DAILY X 7 DAYS), SUBCUTANEOUS
     Route: 058
     Dates: start: 20061214, end: 20061220
  2. MGCD0103 [Suspect]
     Indication: ACUTE MYELOID LEUKAEMIA
     Dosage: 110 MG (THREE TIMES WEEKLY), ORAL
     Route: 048
     Dates: start: 20061218, end: 20070103
  3. FLAGYL [Concomitant]
  4. ACYCLOVIR [Concomitant]
  5. LEVAQUIN [Concomitant]
  6. VORICONAZOLE [Concomitant]
  7. COLACE (DOCUSATE SODIUM) [Concomitant]
  8. BENAZEPRIL HYDROCHLORIDE [Concomitant]

REACTIONS (9)
  - ATRIAL FIBRILLATION [None]
  - CARDIOPULMONARY FAILURE [None]
  - CULTURE URINE POSITIVE [None]
  - ENTEROCOCCAL INFECTION [None]
  - HYPOTENSION [None]
  - NEUTROPENIC SEPSIS [None]
  - NO THERAPEUTIC RESPONSE [None]
  - PERICARDITIS [None]
  - SINUS TACHYCARDIA [None]
